FAERS Safety Report 8004768-7 (Version None)
Quarter: 2011Q4

REPORT INFORMATION
  Report Type: 
  Country: None (occurrence: None)
  Receive Date: 20111223
  Receipt Date: 20111214
  Transmission Date: 20120403
  Serious: Yes (Life-Threatening)
  Sender: FDA-Public Use
  Company Number: IT-NOVOPROD-340303

PATIENT

DRUGS (1)
  1. NOVORAPID PENFILL [Suspect]
     Indication: INTENTIONAL SELF-INJURY
     Dosage: 900 IU, QD
     Route: 058
     Dates: start: 20111122, end: 20111122

REACTIONS (3)
  - OVERDOSE [None]
  - HYPOGLYCAEMIA [None]
  - SUICIDE ATTEMPT [None]
